FAERS Safety Report 12493704 (Version 2)
Quarter: 2016Q3

REPORT INFORMATION
  Report Type: Spontaneous
  Country: AT (occurrence: AT)
  Receive Date: 20160623
  Receipt Date: 20160714
  Transmission Date: 20161109
  Serious: Yes (Hospitalization)
  Sender: FDA-Public Use
  Company Number: AT-JNJFOC-20160618862

PATIENT
  Age: 59 Year
  Sex: Female

DRUGS (1)
  1. SIMPONI [Suspect]
     Active Substance: GOLIMUMAB
     Indication: RHEUMATOID ARTHRITIS
     Route: 058

REACTIONS (4)
  - Suicidal ideation [Recovered/Resolved]
  - Paraparesis [Recovered/Resolved]
  - Herpes zoster [Recovered/Resolved]
  - Somatic symptom disorder [Recovered/Resolved]

NARRATIVE: CASE EVENT DATE: 20150616
